FAERS Safety Report 18216871 (Version 1)
Quarter: 2020Q3

REPORT INFORMATION
  Report Type: Spontaneous
  Country: CA (occurrence: CA)
  Receive Date: 20200901
  Receipt Date: 20200901
  Transmission Date: 20201103
  Serious: Yes (Life-Threatening, Hospitalization, Disabling)
  Sender: FDA-Public Use
  Company Number: CA-ACCORD-198195

PATIENT
  Age: 80 Year
  Sex: Male
  Weight: 68 kg

DRUGS (1)
  1. ROSUVASTATIN. [Suspect]
     Active Substance: ROSUVASTATIN
     Indication: ARTERIOSCLEROSIS CORONARY ARTERY
     Dosage: 1 EVERY 1 DAYS

REACTIONS (6)
  - Myopathy [Recovered/Resolved with Sequelae]
  - Gait disturbance [Recovered/Resolved with Sequelae]
  - Blood creatine phosphokinase increased [Recovered/Resolved with Sequelae]
  - Acute kidney injury [Recovered/Resolved with Sequelae]
  - Myalgia [Recovered/Resolved with Sequelae]
  - Renal tubular necrosis [Recovered/Resolved with Sequelae]
